APPROVED DRUG PRODUCT: TACROLIMUS
Active Ingredient: TACROLIMUS
Strength: EQ 1MG BASE
Dosage Form/Route: CAPSULE;ORAL
Application: A090509 | Product #002 | TE Code: AB
Applicant: DR REDDYS LABORATORIES LTD
Approved: May 12, 2010 | RLD: No | RS: No | Type: RX